FAERS Safety Report 24332492 (Version 2)
Quarter: 2024Q4

REPORT INFORMATION
  Report Type: Report from Study
  Country: US (occurrence: US)
  Receive Date: 20240918
  Receipt Date: 20241011
  Transmission Date: 20250115
  Serious: Yes (Other)
  Sender: AMGEN
  Company Number: US-AMGEN-USASP2024184433

PATIENT
  Age: 74 Year
  Sex: Female

DRUGS (3)
  1. TEPEZZA [Suspect]
     Active Substance: TEPROTUMUMAB-TRBW
     Indication: Endocrine ophthalmopathy
     Dosage: 10 MILLIGRAM/KILOGRAM, Q3WK
     Route: 042
     Dates: start: 20240708
  2. TEPEZZA [Suspect]
     Active Substance: TEPROTUMUMAB-TRBW
     Dosage: 20 MILLIGRAM/KILOGRAM, Q3WK
     Route: 042
     Dates: start: 2024
  3. TEPEZZA [Suspect]
     Active Substance: TEPROTUMUMAB-TRBW
     Dosage: UNK, 1/2 DOSE INFUSION
     Route: 042
     Dates: start: 2024

REACTIONS (12)
  - Deafness [Unknown]
  - Blood pressure increased [Recovering/Resolving]
  - Nausea [Recovering/Resolving]
  - Migraine [Recovering/Resolving]
  - Paraesthesia [Recovering/Resolving]
  - Tinnitus [Recovering/Resolving]
  - Dysgeusia [Unknown]
  - Muscle spasms [Unknown]
  - Feeling hot [Unknown]
  - Diplopia [Not Recovered/Not Resolved]
  - Influenza like illness [Unknown]
  - Off label use [Unknown]

NARRATIVE: CASE EVENT DATE: 20240101
